FAERS Safety Report 8836112 (Version 1)
Quarter: 2012Q4

REPORT INFORMATION
  Report Type: 
  Country: US (occurrence: US)
  Receive Date: 20121011
  Receipt Date: 20121011
  Transmission Date: 20130627
  Serious: Yes (Other)
  Sender: FDA-Public Use
  Company Number: US-JNJFOC-20121001177

PATIENT
  Age: 52 Year
  Sex: Male

DRUGS (4)
  1. STELARA [Suspect]
     Indication: PSORIASIS
     Route: 058
     Dates: start: 201204
  2. IBUPROFEN [Suspect]
     Indication: PAIN
     Route: 065
     Dates: start: 2012
  3. HUMIRA [Suspect]
     Indication: PSORIASIS
     Dosage: 4 years
     Route: 065
     Dates: start: 2008, end: 201204
  4. VICODIN [Suspect]
     Indication: PAIN
     Dosage: As needed
     Route: 065
     Dates: start: 2012

REACTIONS (6)
  - Joint injury [Recovering/Resolving]
  - Arthritis [Unknown]
  - Hypoaesthesia [Unknown]
  - Asthenia [Unknown]
  - Abdominal discomfort [Unknown]
  - Drug effect incomplete [Unknown]
